FAERS Safety Report 8500588-5 (Version None)
Quarter: 2012Q3

REPORT INFORMATION
  Report Type: 
  Country: None (occurrence: None)
  Receive Date: 20120710
  Receipt Date: 20120704
  Transmission Date: 20120928
  Serious: Yes (Hospitalization, Other)
  Sender: FDA-Public Use
  Company Number: CA-ROCHE-1081091

PATIENT
  Sex: Male
  Weight: 29.056 kg

DRUGS (9)
  1. ACTEMRA [Suspect]
     Indication: RHEUMATOID ARTHRITIS
     Route: 042
     Dates: start: 20111206
  2. ACTEMRA [Suspect]
     Dosage: DOSE INCREASED
     Route: 042
     Dates: start: 20120301
  3. PREDNISONE [Concomitant]
  4. ATORVASTATIN [Concomitant]
  5. SANDOZ-MEDO PROPRIOL S.R. (UNK INGREDIENTS) [Concomitant]
  6. PLAQUENIL [Concomitant]
  7. AMLODIPINE [Concomitant]
  8. ASPIRIN [Concomitant]
  9. IRON SULFATETHIAMIN COMPOUND TAB [Concomitant]

REACTIONS (2)
  - VISUAL FIELD DEFECT [None]
  - CEREBROVASCULAR ACCIDENT [None]
